FAERS Safety Report 6679895-7 (Version None)
Quarter: 2010Q2

REPORT INFORMATION
  Report Type: 
  Country: None (occurrence: None)
  Receive Date: 20100409
  Receipt Date: 20100331
  Transmission Date: 20101027
  Serious: No
  Sender: FDA-Public Use
  Company Number: 10-000471

PATIENT
  Age: 16 Year
  Sex: Male
  Weight: 59 kg

DRUGS (3)
  1. DORYX [Suspect]
     Indication: ACNE CYSTIC
     Dosage: 150 MG, QD, ORAL
     Route: 048
     Dates: start: 20100201
  2. INSULIN (INSULIN) [Concomitant]
  3. SYNTHROID [Concomitant]

REACTIONS (1)
  - ANTIENDOMYSIAL ANTIBODY POSITIVE [None]
